FAERS Safety Report 11217557 (Version 3)
Quarter: 2015Q3

REPORT INFORMATION
  Report Type: Spontaneous
  Country: US (occurrence: US)
  Receive Date: 20150625
  Receipt Date: 20150707
  Transmission Date: 20151125
  Serious: Yes (Other)
  Sender: FDA-Public Use
  Company Number: US-AMGEN-USASP2015061311

PATIENT
  Age: 59 Year
  Sex: Female

DRUGS (1)
  1. ENBREL [Suspect]
     Active Substance: ETANERCEPT
     Indication: RHEUMATOID ARTHRITIS
     Dosage: UNK
     Route: 065
     Dates: start: 19980701

REACTIONS (4)
  - Fatigue [Not Recovered/Not Resolved]
  - Joint destruction [Not Recovered/Not Resolved]
  - Arthralgia [Not Recovered/Not Resolved]
  - Hand deformity [Not Recovered/Not Resolved]
